FAERS Safety Report 23367342 (Version 1)
Quarter: 2024Q1

REPORT INFORMATION
  Report Type: Spontaneous
  Country: US (occurrence: None)
  Receive Date: 20240104
  Receipt Date: 20240104
  Transmission Date: 20240410
  Serious: Yes (Death)
  Sender: FDA-Public Use
  Company Number: None

PATIENT
  Sex: Male

DRUGS (4)
  1. MYCOPHENOLATE MOFETIL [Suspect]
     Active Substance: MYCOPHENOLATE MOFETIL
     Indication: Immunodeficiency
     Dosage: 250 MG ORAL??TAKE 2 CAPSULES (500 MG) BY MOUTH TWICE DAILY
     Route: 048
     Dates: start: 20230217
  2. METOPROLOL TARTRATE [Concomitant]
     Active Substance: METOPROLOL TARTRATE
  3. TACROLIMUS [Concomitant]
     Active Substance: TACROLIMUS
  4. URSODIOL [Concomitant]
     Active Substance: URSODIOL

REACTIONS (1)
  - Death [None]
